FAERS Safety Report 7441421-2 (Version None)
Quarter: 2011Q2

REPORT INFORMATION
  Report Type: 
  Country: None (occurrence: None)
  Receive Date: 20110428
  Receipt Date: 20110413
  Transmission Date: 20111010
  Serious: Yes (Other)
  Sender: FDA-Public Use
  Company Number: GR-JNJFOC-20100303493

PATIENT
  Age: 41 Year
  Sex: Male
  Weight: 96 kg

DRUGS (3)
  1. REMICADE [Suspect]
     Dosage: 2ND INFUSION ON AN UNSPECIFIED DATE
     Route: 042
  2. REMICADE [Suspect]
     Indication: PSORIASIS
     Route: 042
  3. TANATRIL [Concomitant]
     Indication: HYPERTENSION

REACTIONS (1)
  - TUBERCULIN TEST POSITIVE [None]
